FAERS Safety Report 10816492 (Version 1)
Quarter: 2015Q1

REPORT INFORMATION
  Report Type: Spontaneous
  Country: JP (occurrence: JP)
  Receive Date: 20150218
  Receipt Date: 20150218
  Transmission Date: 20150721
  Serious: Yes (Other)
  Sender: FDA-Public Use
  Company Number: JP-TEVA-541194ISR

PATIENT
  Age: 58 Year
  Sex: Female

DRUGS (2)
  1. PACLITAXEL. [Suspect]
     Active Substance: PACLITAXEL
     Indication: VAGINAL CANCER
     Dosage: WEEKLY 35MG/M2 FOR 5 WEEKS
     Route: 065
  2. CARBOPLATIN. [Suspect]
     Active Substance: CARBOPLATIN
     Indication: VAGINAL CANCER
     Dosage: WEEKLY, AREA UNDER THE BLOOD CONCENTRATION TIME CURVE [AUC] = 5 FOR 5 WEEKS
     Route: 065

REACTIONS (4)
  - Skin ulcer [Recovered/Resolved]
  - Diarrhoea [Recovered/Resolved]
  - Neutropenia [Recovered/Resolved]
  - Anaemia [Recovered/Resolved]
